FAERS Safety Report 25754404 (Version 1)
Quarter: 2025Q3

REPORT INFORMATION
  Report Type: Spontaneous
  Country: BR (occurrence: BR)
  Receive Date: 20250903
  Receipt Date: 20250903
  Transmission Date: 20251020
  Serious: Yes (Other)
  Sender: AMERICAN REGENT
  Company Number: BR-AMERICAN REGENT INC-2025003329

PATIENT
  Age: 35 Year
  Sex: Female

DRUGS (1)
  1. FERINJECT [Suspect]
     Active Substance: FERRIC CARBOXYMALTOSE
     Indication: Iron deficiency anaemia
     Route: 042
     Dates: start: 20250822, end: 20250822

REACTIONS (1)
  - Skin reaction [Recovered/Resolved]

NARRATIVE: CASE EVENT DATE: 20250822
